FAERS Safety Report 16778132 (Version 2)
Quarter: 2019Q4

REPORT INFORMATION
  Report Type: Report from Study
  Country: JP (occurrence: JP)
  Receive Date: 20190905
  Receipt Date: 20191106
  Transmission Date: 20200122
  Serious: Yes (Hospitalization)
  Sender: FDA-Public Use
  Company Number: JP-BEH-2019106440

PATIENT
  Age: 80 Year
  Sex: Male
  Weight: 60.9 kg

DRUGS (45)
  1. KAYTWO N [Concomitant]
     Active Substance: MENATETRENONE
     Indication: ANTICOAGULANT THERAPY
     Dosage: 20 MILLIGRAM, SINGLE, DRIP INFUSION
     Route: 041
     Dates: start: 20180218, end: 20180218
  2. TEPRENONE [Concomitant]
     Active Substance: TEPRENONE
     Dosage: 2 CAPSULES, AFTER BREAKFAST AND DINNER (SUSPENSION METHOD)
     Route: 048
     Dates: end: 20180217
  3. FAMOTIDINE. [Concomitant]
     Active Substance: FAMOTIDINE
     Dosage: 20 MILLIGRAM (=2 TUBES) 12 HOURS
     Route: 042
     Dates: start: 20180217, end: 20180218
  4. SOLULACT [Concomitant]
     Dosage: 500 MILLILITER (=1 BAG) 8 HOURS, 3 BAGS DAILY
     Route: 041
     Dates: start: 20190218, end: 20190228
  5. ISOTONIC SODIUM CHLORIDE SOLUTION [Concomitant]
     Active Substance: SODIUM CHLORIDE
     Dosage: 1 SYRINGE/6 HOURS, 4 SYRINGES DAILY
     Route: 065
     Dates: start: 20180220, end: 20180220
  6. SEPAMIT-R [Concomitant]
     Active Substance: NIFEDIPINE
     Indication: HYPERTENSION
     Dosage: 40 MILLIGRAM (=4 CAPSULES), AFTER BREAKFAST AND DINNER
     Route: 048
     Dates: start: 20180221, end: 20180222
  7. FAMOTIDINE. [Concomitant]
     Active Substance: FAMOTIDINE
     Dosage: 20 MILLIGRAM (=1 TUBE) 1 DAY
     Route: 042
     Dates: start: 20180219, end: 20180219
  8. BERIPLEX P/N [Suspect]
     Active Substance: COAGULATION FACTOR IX HUMAN\COAGULATION FACTOR VII HUMAN\COAGULATION FACTOR X HUMAN\PROTEIN C\PROTEIN S HUMAN\PROTHROMBIN
     Indication: HAEMORRHAGE
     Dosage: 2500 INTERNATIONAL UNIT
     Route: 042
     Dates: start: 20180217
  9. ROSUVASTATIN CALCIUM. [Concomitant]
     Active Substance: ROSUVASTATIN CALCIUM
     Dosage: 2.5 MILLIGRAM, QD
     Route: 048
     Dates: end: 20180217
  10. ZOSYN [Concomitant]
     Active Substance: PIPERACILLIN SODIUM\TAZOBACTAM SODIUM
     Indication: BACTERIAL INFECTION
     Dosage: 1 BOTTLE INJECTION 8 HOURS (3 BOTTLES DAILY)
     Route: 041
     Dates: start: 20180218, end: 20180223
  11. TELEMINSOFT [Concomitant]
     Active Substance: BISACODYL
     Indication: CONSTIPATION
     Dosage: 1 RECTAL SUPPOSITORY, AS NECESSARY (AS REQUIRED AT THE ONSET OF CONSTIPATION)
     Route: 054
     Dates: start: 20180220, end: 20180220
  12. GLYCEOL [FRUCTOSE;GLYCEROL] [Concomitant]
     Dosage: 200 MILLILITER(=1 BAG) 1 DAY, 1 BAG DAILY
     Route: 041
     Dates: start: 20180221, end: 20180221
  13. NEOPHAGEN [CYSTEINE;GLYCINE;GLYCYRRHIZIC ACID] [Concomitant]
     Indication: HEPATIC FUNCTION ABNORMAL
     Dosage: 40 MILLILITER (=2 TUBES) 12 HOURS, 4 TUBES DAILY
     Route: 041
     Dates: start: 20180220, end: 20180224
  14. ENALAPRIL MALEATE. [Concomitant]
     Active Substance: ENALAPRIL MALEATE
     Indication: HYPERTENSION
     Dosage: 10 MILLIGRAM (=2 TABLETS), AFTER BREAKFAST AND DINNER, 4 TABLETS DAILY
     Route: 048
     Dates: start: 20180224
  15. BERIPLEX P/N [Suspect]
     Active Substance: COAGULATION FACTOR IX HUMAN\COAGULATION FACTOR VII HUMAN\COAGULATION FACTOR X HUMAN\PROTEIN C\PROTEIN S HUMAN\PROTHROMBIN
     Indication: HAEMORRHAGE
     Dosage: 2500 INTERNATIONAL UNIT
     Route: 042
     Dates: start: 20180217
  16. GLYCEOL [FRUCTOSE;GLYCEROL] [Concomitant]
     Dosage: 200 MILLILITER(=1 BAG) 12 HOURS, 2 BAGS DAILY
     Route: 041
     Dates: start: 20180220, end: 20180220
  17. ISOTONIC SODIUM CHLORIDE SOLUTION [Concomitant]
     Active Substance: SODIUM CHLORIDE
     Dosage: 5 MILLILITER, 5 TIMES/DAY
     Route: 065
     Dates: start: 20180217, end: 20180217
  18. MAXIPIME [Concomitant]
     Active Substance: CEFEPIME HYDROCHLORIDE
     Indication: BACTERIAL INFECTION
     Dosage: 1 GRAM (=1 BOTTLE), 12 HOURS
     Route: 041
     Dates: start: 20180224, end: 20180301
  19. SOLDEM 3A [Concomitant]
     Active Substance: CARBOHYDRATES\POTASSIUM CHLORIDE\SODIUM CHLORIDE\SODIUM LACTATE
     Dosage: 500 MILLILITER (=1 BAG), 12 HOURS, 2 BAGS DAILY
     Route: 041
     Dates: start: 20180301, end: 20180301
  20. TICLOPIDINE HYDROCHLORIDE. [Concomitant]
     Active Substance: TICLOPIDINE HYDROCHLORIDE
     Dosage: 2 TABLETS AFTER BREAKFAST AND DINNER (SUSPENSION METHOD)
     Route: 048
     Dates: end: 20180217
  21. NICARDIPINE HYDROCHLORIDE. [Concomitant]
     Active Substance: NICARDIPINE HYDROCHLORIDE
     Dosage: 5 TUBES DAILY
     Route: 041
     Dates: start: 20180217, end: 20180220
  22. NICARDIPINE HYDROCHLORIDE. [Concomitant]
     Active Substance: NICARDIPINE HYDROCHLORIDE
     Dosage: 5 TUBES DAILY
     Route: 041
     Dates: start: 20180217, end: 20180217
  23. URSODEOXYCHOLIC ACID [Concomitant]
     Active Substance: URSODIOL
     Indication: HEPATIC FUNCTION ABNORMAL
     Dosage: 250 MILLIGRAM (=5 TABLETS) AFTER EVERY MEAL, 15 TABLETS DAILY
     Route: 048
     Dates: start: 20180220, end: 20180302
  24. BENIDIPINE HYDROCHLORIDE [Concomitant]
     Active Substance: BENIDIPINE HYDROCHLORIDE
     Dosage: 4 MILLIGRAM, QD
     Route: 048
     Dates: end: 20180217
  25. AMLODIPINE BESILATE [Concomitant]
     Active Substance: AMLODIPINE BESYLATE
     Indication: HYPERTENSION
     Dosage: 5 MILLIGRAM, QD
     Route: 048
     Dates: start: 20180219, end: 20180302
  26. NORMAL SALINE [Concomitant]
     Active Substance: SODIUM CHLORIDE
     Dosage: 20 MILLILITER (=1 TUBE) 1 DAY
     Route: 042
     Dates: start: 20180219, end: 20180219
  27. SOLULACT [Concomitant]
     Dosage: 500 MILLILITER (=1 BAG) 12 HOURS, 2 BAGS DAILY
     Route: 041
     Dates: start: 20190217, end: 20190217
  28. NICARDIPINE HYDROCHLORIDE. [Concomitant]
     Active Substance: NICARDIPINE HYDROCHLORIDE
     Dosage: 15 TUBES DAILY (5 TUBES / 8 HOURS)
     Route: 041
     Dates: start: 20180218, end: 20180218
  29. NICARDIPINE HYDROCHLORIDE. [Concomitant]
     Active Substance: NICARDIPINE HYDROCHLORIDE
     Dosage: 5 TUBES DAILY
     Route: 041
     Dates: start: 20180220, end: 20180220
  30. ISOTONIC SODIUM CHLORIDE SOLUTION [Concomitant]
     Active Substance: SODIUM CHLORIDE
     Dosage: 5 MILLILITER, 6 TIMES/DAY
     Route: 065
     Dates: start: 20180218, end: 20180219
  31. ISOTONIC SODIUM CHLORIDE SOLUTION [Concomitant]
     Active Substance: SODIUM CHLORIDE
     Dosage: 100 MILLILITER (=1 KIT), 12 HOURS
     Route: 041
     Dates: start: 20180224, end: 20180301
  32. ALOSENN [ACHILLEA MILLEFOLIUM;RUBIA TINCTORUM ROOT TINCTURE;SENNA ALEX [Concomitant]
     Active Substance: ACHILLEA MILLEFOLIUM\RUBIA TINCTURE\SENNA FRUIT EXTRACT\SENNA LEAF\TARAXACUM OFFICINALE
     Indication: CONSTIPATION
     Dosage: 0.5 GRAM, AS NECESSARY (AS REQUIRED AT THE ONSET OF CONSTIPATION)
     Route: 048
     Dates: start: 20180301, end: 20180301
  33. VALSARTAN NIPRO [Concomitant]
     Dosage: 80 MILLIGRAM, QD
     Route: 048
     Dates: end: 20180217
  34. ISOTONIC SODIUM CHLORIDE SOLUTION [Concomitant]
     Active Substance: SODIUM CHLORIDE
     Dosage: 1 KIT INJECTION 8 HOURS (3 KITS DAILY)
     Route: 041
     Dates: start: 20180218, end: 20180223
  35. CANDESARTAN CILEXETIL. [Concomitant]
     Active Substance: CANDESARTAN CILEXETIL
     Indication: HYPERTENSION
     Dosage: 8 MILLIGRAM, QD
     Route: 048
     Dates: start: 20180219, end: 20180302
  36. TELEMINSOFT [Concomitant]
     Active Substance: BISACODYL
     Dosage: 1 RECTAL SUPPOSITORY, AS NECESSARY (AS REQUIRED AT THE ONSET OF CONSTIPATION)
     Route: 054
     Dates: start: 20180304, end: 20180304
  37. CALONAL [Concomitant]
     Active Substance: ACETAMINOPHEN
     Indication: PYREXIA
     Dosage: 1 GRAM, FINE GRANULES, AS NECESSARY (AS REQUIRED AT THE ONSET OF PYREXIA)
     Route: 048
     Dates: start: 20180219, end: 20180219
  38. WARFARIN POTASSIUM [Concomitant]
     Active Substance: WARFARIN POTASSIUM
     Indication: PRODUCT USED FOR UNKNOWN INDICATION
     Dosage: 3.5 MILLIGRAM, AFTER DINNER (SUSPENSION METHOD)
     Route: 048
  39. FAMOTIDINE TEVA [Concomitant]
     Active Substance: FAMOTIDINE
     Indication: GASTRIC ULCER
     Dosage: 2 TABLETS AFTER BREAKFAST AND DINNER
     Route: 048
     Dates: start: 20180219
  40. CALONAL [Concomitant]
     Active Substance: ACETAMINOPHEN
     Indication: BACTERIAL INFECTION
  41. NORMAL SALINE [Concomitant]
     Active Substance: SODIUM CHLORIDE
     Dosage: 20 MILLILITER (=1 TUBE) 12 HOURS
     Route: 042
     Dates: start: 20180217, end: 20180218
  42. GLYCEOL [FRUCTOSE;GLYCEROL] [Concomitant]
     Dosage: 200 MILLILITER(=1 BAG) 8 HOURS, 3 BAGS DAILY
     Route: 041
     Dates: start: 20180217, end: 20180219
  43. NICARDIPINE HYDROCHLORIDE. [Concomitant]
     Active Substance: NICARDIPINE HYDROCHLORIDE
     Dosage: 10 TUBES DAILY (5 TUBES / 12 HOURS)
     Route: 041
     Dates: start: 20180219, end: 20180219
  44. SEPAMIT-R [Concomitant]
     Active Substance: NIFEDIPINE
     Dosage: 10 MILLIGRAM (=1 CAPSULE) AS NECESSARY (AS REQUIRED AT THE ONSET OF HYPERTENSION)
     Route: 048
     Dates: start: 20180222
  45. DOXAZOSIN MESILATE [Concomitant]
     Active Substance: DOXAZOSIN MESYLATE
     Indication: HYPERTENSION
     Dosage: 2 TABLETS AFTER DINNER
     Route: 048
     Dates: start: 20180302, end: 20180302

REACTIONS (2)
  - Bacterial infection [Recovered/Resolved]
  - Hepatic function abnormal [Recovered/Resolved]

NARRATIVE: CASE EVENT DATE: 20190218
